FAERS Safety Report 7750593-1 (Version None)
Quarter: 2011Q3

REPORT INFORMATION
  Report Type: 
  Country: None (occurrence: None)
  Receive Date: 20110912
  Receipt Date: 20110830
  Transmission Date: 20111222
  Serious: Yes (Death)
  Sender: FDA-Public Use
  Company Number: ABR_00233_2011

PATIENT
  Sex: Female
  Weight: 27.5 kg

DRUGS (13)
  1. RABEPRAZOLE SODIUM [Concomitant]
  2. DISOPYRAMIDE [Concomitant]
  3. CLARITHROMYCIN [Suspect]
     Indication: BRONCHIOLITIS
     Dosage: (200 MG, 200 MG (1 IN 1 D) ORAL), (800 MG, 800 MG (400 MG, 2 IN 1  D) ORAL)
     Route: 048
     Dates: start: 20060919, end: 20061016
  4. CLARITHROMYCIN [Suspect]
     Indication: BRONCHIOLITIS
     Dosage: (200 MG, 200 MG (1 IN 1 D) ORAL), (800 MG, 800 MG (400 MG, 2 IN 1  D) ORAL)
     Route: 048
     Dates: start: 20060630, end: 20060918
  5. THEOPHYLLINE [Concomitant]
  6. ZOLPIDEM TARTRATE [Concomitant]
  7. ERYTHROCIN [Suspect]
     Indication: BRONCHIOLITIS
     Dosage: (600 MG 600 MG (200 MG, 3 IN 1 D) ORAL)
     Route: 048
     Dates: start: 19920101
  8. FUROSEMIDE [Concomitant]
  9. URSODIOL [Concomitant]
  10. TIOTROPIUM BROMIDE MONOHYDRATE [Concomitant]
  11. ISOSORBIDE DINITRATE [Concomitant]
  12. RADIOTHERAPY [Concomitant]
  13. PIMOBENDAN [Concomitant]

REACTIONS (15)
  - VENTRICULAR TACHYCARDIA [None]
  - DISEASE PROGRESSION [None]
  - ARRHYTHMIA [None]
  - UTERINE CANCER [None]
  - RESPIRATORY FAILURE [None]
  - RESPIRATORY ARREST [None]
  - ARTERIOSCLEROSIS CORONARY ARTERY [None]
  - HYPERCAPNIA [None]
  - ELECTROLYTE IMBALANCE [None]
  - CARDIAC ARREST [None]
  - BRONCHIOLITIS [None]
  - OBSTRUCTIVE AIRWAYS DISORDER [None]
  - COR PULMONALE [None]
  - DEPRESSED LEVEL OF CONSCIOUSNESS [None]
  - BLOOD POTASSIUM DECREASED [None]
